FAERS Safety Report 9393266 (Version 1)
Quarter: 2013Q3

REPORT INFORMATION
  Report Type: Report from Study
  Country: US (occurrence: US)
  Receive Date: 20130710
  Receipt Date: 20130710
  Transmission Date: 20140515
  Serious: Yes (Other)
  Sender: FDA-Public Use
  Company Number: US-US-EMD SERONO, INC.-7222432

PATIENT
  Age: 64 Year
  Sex: Female

DRUGS (2)
  1. REBIF [Suspect]
     Indication: PRODUCT USED FOR UNKNOWN INDICATION
     Route: 058
     Dates: start: 20130109
  2. PROPRANOLOL [Concomitant]
     Indication: HYPERTENSION

REACTIONS (5)
  - Blood pressure increased [Not Recovered/Not Resolved]
  - Vomiting [Unknown]
  - Crying [Not Recovered/Not Resolved]
  - Hyperhidrosis [Unknown]
  - Headache [Unknown]
